FAERS Safety Report 16304505 (Version 1)
Quarter: 2019Q2

REPORT INFORMATION
  Report Type: Spontaneous
  Country: US (occurrence: US)
  Receive Date: 20190513
  Receipt Date: 20190513
  Transmission Date: 20190711
  Serious: No
  Sender: FDA-Public Use
  Company Number: US-PFIZER INC-2019199342

PATIENT
  Age: 67 Year

DRUGS (1)
  1. LYRICA [Suspect]
     Active Substance: PREGABALIN
     Dosage: UNK
     Dates: end: 20190409

REACTIONS (3)
  - Protein urine present [Unknown]
  - Renal disorder [Unknown]
  - Glucose urine present [Unknown]
